FAERS Safety Report 9067142 (Version 1)
Quarter: 2013Q1

REPORT INFORMATION
  Report Type: Spontaneous
  Country: US (occurrence: US)
  Receive Date: 20130214
  Receipt Date: 20130214
  Transmission Date: 20140127
  Serious: Yes (Hospitalization)
  Sender: FDA-Public Use
  Company Number: US-BAYER-2013-019190

PATIENT
  Age: 36 Year
  Sex: Female

DRUGS (3)
  1. YASMIN [Suspect]
     Indication: MENORRHAGIA
     Dosage: UNK
  2. CEFTIN [Concomitant]
     Dosage: UNK
     Dates: start: 20080608
  3. PHENERGAN WITH CODEINE [Concomitant]
     Dosage: UNK
     Dates: start: 20080608

REACTIONS (2)
  - Deep vein thrombosis [Recovered/Resolved]
  - Pelvic venous thrombosis [Recovered/Resolved]
